FAERS Safety Report 13815174 (Version 5)
Quarter: 2018Q1

REPORT INFORMATION
  Report Type: Report from Study
  Country: US (occurrence: US)
  Receive Date: 20170731
  Receipt Date: 20180310
  Transmission Date: 20180508
  Serious: Yes (Hospitalization, Other)
  Sender: FDA-Public Use
  Company Number: US-AMGEN-USASL2017112523

PATIENT
  Age: 67 Year
  Sex: Female

DRUGS (2)
  1. REPATHA [Suspect]
     Active Substance: EVOLOCUMAB
     Indication: BLOOD CHOLESTEROL INCREASED
     Dosage: 140 MG, Q2WK
     Route: 065
     Dates: start: 2017, end: 201710
  2. REPATHA [Suspect]
     Active Substance: EVOLOCUMAB
     Indication: HYPERCHOLESTEROLAEMIA

REACTIONS (17)
  - Blindness [Unknown]
  - Back pain [Unknown]
  - Gait disturbance [Unknown]
  - Sepsis [Unknown]
  - Pruritus [Unknown]
  - Diabetes mellitus [Unknown]
  - Memory impairment [Unknown]
  - Angiopathy [Unknown]
  - Pain in extremity [Unknown]
  - Arthralgia [Recovering/Resolving]
  - Anxiety [Unknown]
  - Bone pain [Not Recovered/Not Resolved]
  - Insomnia [Unknown]
  - Eczema [Unknown]
  - Depression [Unknown]
  - Bursa disorder [Recovering/Resolving]
  - Peripheral swelling [Unknown]

NARRATIVE: CASE EVENT DATE: 2017
